FAERS Safety Report 4784441-9 (Version None)
Quarter: 2005Q3

REPORT INFORMATION
  Report Type: 
  Country: None (occurrence: None)
  Receive Date: 20050928
  Receipt Date: 20050909
  Transmission Date: 20060218
  Serious: Yes (Other)
  Sender: FDA-Public Use
  Company Number: TRP_0447_2005

PATIENT
  Age: 50 Year
  Sex: Male

DRUGS (4)
  1. RIBASPHERE [Suspect]
     Indication: HEPATITIS C
     Dosage: DF PO
     Route: 048
     Dates: start: 20050730
  2. PEG-INTRON [Suspect]
     Indication: HEPATITIS C
     Dosage: DF SC
     Route: 058
     Dates: start: 20050730
  3. LASIX [Concomitant]
  4. TYLENOL (CAPLET) [Concomitant]

REACTIONS (2)
  - ASCITES [None]
  - PLATELET COUNT DECREASED [None]
